FAERS Safety Report 8447804-6 (Version None)
Quarter: 2012Q2

REPORT INFORMATION
  Report Type: 
  Country: None (occurrence: None)
  Receive Date: 20120619
  Receipt Date: 20120612
  Transmission Date: 20120825
  Serious: Yes (Life-Threatening, Hospitalization)
  Sender: FDA-Public Use
  Company Number: JP-BAYER-2012-053547

PATIENT
  Age: 27 Year
  Sex: Female
  Weight: 78 kg

DRUGS (2)
  1. YAZ [Suspect]
     Indication: MENSTRUATION IRREGULAR
  2. YAZ [Suspect]
     Indication: DYSMENORRHOEA
     Dosage: 1 DF, QD
     Route: 048
     Dates: start: 20110501, end: 20120516

REACTIONS (6)
  - SHOCK [None]
  - COR PULMONALE ACUTE [None]
  - LOSS OF CONSCIOUSNESS [None]
  - DYSPNOEA [None]
  - PULMONARY THROMBOSIS [None]
  - FALL [None]
